FAERS Safety Report 4430036-6 (Version None)
Quarter: 2004Q3

REPORT INFORMATION
  Report Type: 
  Country: None (occurrence: None)
  Receive Date: 20040817
  Receipt Date: 20040804
  Transmission Date: 20050211
  Serious: Yes (Other)
  Sender: FDA-Public Use
  Company Number: S04-USA-04732-01

PATIENT
  Age: 61 Year
  Sex: Male
  Weight: 145 kg

DRUGS (10)
  1. LEXAPRO [Suspect]
     Indication: DEPRESSION
     Dosage: 20 MG QD PO
     Route: 048
     Dates: start: 20040615, end: 20040801
  2. LEXAPRO [Suspect]
     Indication: DEPRESSION
     Dosage: 10 MG QD PO
     Route: 048
     Dates: start: 20040601, end: 20040614
  3. LEXAPRO [Suspect]
     Indication: DEPRESSION
     Dosage: 10 MG QD PO
     Route: 048
     Dates: start: 20040801, end: 20040802
  4. WELLBUTRIN [Suspect]
     Indication: DEPRESSION
     Dosage: 300 MG QD
     Dates: start: 19990101, end: 20040802
  5. WELLBUTRIN [Suspect]
     Indication: DEPRESSION
     Dosage: 150 MG QD
     Dates: start: 20040803
  6. AMBIEN [Concomitant]
  7. TRAZODONE [Concomitant]
  8. LIPITOR [Concomitant]
  9. ACHIPHEX (RABEPRAZOLE SODIUM) [Concomitant]
  10. ASPIRIN [Concomitant]

REACTIONS (10)
  - ABNORMAL BEHAVIOUR [None]
  - AGITATION [None]
  - BELLIGERENCE [None]
  - CONFUSIONAL STATE [None]
  - DELUSION [None]
  - INSOMNIA [None]
  - MANIA [None]
  - MARKEDLY REDUCED DIETARY INTAKE [None]
  - PARANOIA [None]
  - SPEECH DISORDER [None]
